FAERS Safety Report 9161512 (Version 3)
Quarter: 2013Q2

REPORT INFORMATION
  Report Type: Spontaneous
  Country: US (occurrence: US)
  Receive Date: 20130313
  Receipt Date: 20130408
  Transmission Date: 20140414
  Serious: Yes (Disabling, Other)
  Sender: FDA-Public Use
  Company Number: US-ABBOTT-13P-163-1058768-00

PATIENT
  Age: 57 Year
  Sex: Male

DRUGS (19)
  1. HUMIRA [Suspect]
     Indication: PSORIASIS
     Dates: start: 20121206, end: 20121206
  2. HUMIRA [Suspect]
     Indication: PSORIATIC ARTHROPATHY
     Dates: start: 20121207, end: 20130219
  3. CLINDAMYCIN [Suspect]
     Indication: EYE INFECTION TOXOPLASMAL
     Dates: start: 2013, end: 2013
  4. CLOPIDOGREL [Concomitant]
     Indication: CORONARY ARTERY DISEASE
  5. POTASSIUM [Concomitant]
     Indication: BLOOD POTASSIUM DECREASED
  6. BABY ASPIRIN [Concomitant]
     Indication: PRODUCT USED FOR UNKNOWN INDICATION
  7. SIMVASTATIN [Concomitant]
     Indication: BLOOD CHOLESTEROL INCREASED
     Route: 048
  8. OMEPRAZOLE [Concomitant]
     Indication: GASTROOESOPHAGEAL REFLUX DISEASE
     Route: 048
  9. DULERA [Concomitant]
     Indication: CHRONIC OBSTRUCTIVE PULMONARY DISEASE
  10. VALIUM [Concomitant]
     Indication: BIPOLAR DISORDER
  11. VALIUM [Concomitant]
     Indication: ANXIETY DISORDER
  12. VALIUM [Concomitant]
     Indication: PANIC ATTACK
  13. METOPROLOL [Concomitant]
     Indication: HYPERTENSION
  14. BREWERS YEAST VITAMINS [Concomitant]
     Indication: PRODUCT USED FOR UNKNOWN INDICATION
     Dosage: 6 PILLS
  15. ASPIRIN [Concomitant]
     Indication: PRODUCT USED FOR UNKNOWN INDICATION
     Route: 048
  16. AVODART [Concomitant]
     Indication: PROSTATIC DISORDER
     Route: 048
  17. FLOMAX [Concomitant]
     Indication: PRODUCT USED FOR UNKNOWN INDICATION
     Route: 048
  18. NITROSTAT [Concomitant]
     Indication: ISCHAEMIC HEART DISEASE PROPHYLAXIS
  19. PLAVIX [Concomitant]
     Indication: BLOOD CHOLESTEROL
     Route: 048

REACTIONS (11)
  - Visual impairment [Not Recovered/Not Resolved]
  - Eye infection toxoplasmal [Recovered/Resolved with Sequelae]
  - Lip swelling [Recovered/Resolved]
  - Plicated tongue [Recovered/Resolved]
  - Sinus congestion [Not Recovered/Not Resolved]
  - Eye infection [Unknown]
  - Visual acuity reduced [Unknown]
  - Liver injury [Unknown]
  - Renal disorder [Unknown]
  - Oedema mouth [Unknown]
  - Swollen tongue [Unknown]
